FAERS Safety Report 5962378-7 (Version None)
Quarter: 2008Q4

REPORT INFORMATION
  Report Type: 
  Country: None (occurrence: None)
  Receive Date: 20081121
  Receipt Date: 20081113
  Transmission Date: 20090506
  Serious: Yes (Other)
  Sender: FDA-Public Use
  Company Number: US-AMGEN-QUU284645

PATIENT
  Sex: Female
  Weight: 80.8 kg

DRUGS (12)
  1. ENBREL [Suspect]
     Indication: RHEUMATOID ARTHRITIS
     Route: 058
     Dates: start: 20050711
  2. METHOTREXATE [Concomitant]
     Dates: start: 20050201
  3. VITAMIN D [Concomitant]
     Dates: start: 20080608
  4. FOLIC ACID [Concomitant]
     Dates: start: 20050201
  5. ASPIRIN [Concomitant]
  6. FISH OIL [Concomitant]
  7. VERAPAMIL [Concomitant]
     Dates: start: 19870101
  8. EXCEDRIN [Concomitant]
  9. ALEVE [Concomitant]
  10. CALCIUM [Concomitant]
  11. POTASSIUM CHLORIDE [Concomitant]
  12. SKIN OINTMENT NOS [Concomitant]

REACTIONS (1)
  - CAROTID ARTERY STENOSIS [None]
